FAERS Safety Report 4444584-6 (Version None)
Quarter: 2004Q3

REPORT INFORMATION
  Report Type: 
  Country: None (occurrence: None)
  Receive Date: 20040902
  Receipt Date: 20040820
  Transmission Date: 20050211
  Serious: Yes (Other)
  Sender: FDA-Public Use
  Company Number: 2004058557

PATIENT
  Sex: Female

DRUGS (9)
  1. NEURONTIN [Suspect]
     Indication: REFLEX SYMPATHETIC DYSTROPHY
     Dosage: 400 MG (400 MG), ORAL
     Route: 048
     Dates: start: 19940101
  2. CERTIZINE HYDROCHLORIDE (CETIRIZINE HYDROCHLORIDE) [Concomitant]
  3. RANITIDINE HYDROCHLORIDE [Concomitant]
  4. DIPHENHYDRAMINE HCL [Concomitant]
  5. MORPHINE SULFATE [Concomitant]
  6. INTERFERON BETA (INTERFERON BETA) [Concomitant]
  7. LOPERAMIDE HYDROCHLORIDE [Concomitant]
  8. OXYBUTYNIN CHLORIDE [Concomitant]
  9. TIZANIDINE HCL [Concomitant]

REACTIONS (7)
  - MULTIPLE SCLEROSIS [None]
  - TEETH BRITTLE [None]
  - THERAPEUTIC RESPONSE DECREASED [None]
  - TOOTH DISORDER [None]
  - TOOTH EXTRACTION [None]
  - TOOTH INJURY [None]
  - WEIGHT DECREASED [None]
